FAERS Safety Report 17242005 (Version 2)
Quarter: 2020Q1

REPORT INFORMATION
  Report Type: Report from Study
  Country: CO (occurrence: CO)
  Receive Date: 20200107
  Receipt Date: 20200122
  Transmission Date: 20200409
  Serious: Yes (Hospitalization)
  Sender: FDA-Public Use
  Company Number: PHHY2019CO207324

PATIENT
  Sex: Female

DRUGS (2)
  1. AMLODIPINE [Concomitant]
     Active Substance: AMLODIPINE BESYLATE
     Indication: HYPERTENSION
     Dosage: 50 MG, QD
     Route: 048
  2. KISQALI [Suspect]
     Active Substance: RIBOCICLIB
     Indication: BREAST CANCER METASTATIC
     Dosage: 400 MG, QD
     Route: 048

REACTIONS (10)
  - Depressed mood [Unknown]
  - Pain in extremity [Unknown]
  - Malaise [Unknown]
  - Chills [Unknown]
  - Pain [Unknown]
  - Viral infection [Unknown]
  - Body temperature increased [Unknown]
  - Feeling cold [Unknown]
  - Headache [Unknown]
  - Neuralgia [Unknown]
